FAERS Safety Report 7274074-7 (Version None)
Quarter: 2011Q1

REPORT INFORMATION
  Report Type: 
  Country: None (occurrence: None)
  Receive Date: 20110204
  Receipt Date: 20110121
  Transmission Date: 20110831
  Serious: Yes (Hospitalization, Other)
  Sender: FDA-Public Use
  Company Number: NL-AMGEN-NLDSP2011000640

PATIENT
  Age: 58 Year
  Sex: Male

DRUGS (5)
  1. ENBREL [Suspect]
     Indication: PSORIASIS
     Dosage: 50 MG, WEEKLY
     Dates: start: 20080221
  2. PANTOPRAZOLE [Concomitant]
     Dosage: 40 MG, 1X/DAY
  3. FERROFUMARAT [Concomitant]
     Dosage: 200 MG, 3X/DAY
  4. SPIRONOLACTONE [Concomitant]
     Dosage: 100 MG, 1X/DAY
  5. FUROSEMIDE [Concomitant]
     Dosage: 40 MG, 1X/DAY

REACTIONS (4)
  - YELLOW SKIN [None]
  - DYSPHAGIA [None]
  - PYREXIA [None]
  - PNEUMONIA [None]
